FAERS Safety Report 17157677 (Version 1)
Quarter: 2019Q4

REPORT INFORMATION
  Report Type: Spontaneous
  Country: US (occurrence: US)
  Receive Date: 20191121
  Receipt Date: 20191121
  Transmission Date: 20200122
  Serious: Yes (Other)
  Sender: FDA-Public Use
  Company Number: None

PATIENT
  Age: 71 Year
  Sex: Male
  Weight: 99.79 kg

DRUGS (9)
  1. LYRICA [Concomitant]
     Active Substance: PREGABALIN
  2. HYDROCHLOROTHIAZIDE. [Concomitant]
     Active Substance: HYDROCHLOROTHIAZIDE
  3. VITAMIN D3 [Concomitant]
     Active Substance: CHOLECALCIFEROL
  4. R ALPHA LOPOIC ACID [Concomitant]
  5. TESTOSTERONE CREAM [Concomitant]
     Active Substance: TESTOSTERONE
  6. MULTIVITAMIN [Concomitant]
     Active Substance: VITAMINS
  7. MATANX [Concomitant]
  8. BUPRENORPHINE. [Suspect]
     Active Substance: BUPRENORPHINE
     Indication: NEURALGIA
     Dosage: ?          QUANTITY:15 UG MICROGRAM(S);?
     Route: 061
     Dates: start: 20160224
  9. LEVOTHYROXINE. [Concomitant]
     Active Substance: LEVOTHYROXINE

REACTIONS (4)
  - Product substitution issue [None]
  - Drug ineffective [None]
  - Pain [None]
  - Product adhesion issue [None]

NARRATIVE: CASE EVENT DATE: 20190904
